FAERS Safety Report 10230120 (Version 1)
Quarter: 2014Q2

REPORT INFORMATION
  Report Type: Spontaneous
  Country: US (occurrence: None)
  Receive Date: 20140610
  Receipt Date: 20140610
  Transmission Date: 20141212
  Serious: Yes (Death)
  Sender: FDA-Public Use
  Company Number: None

PATIENT
  Sex: Male

DRUGS (1)
  1. SUTENT 50 MG PFIZER [Suspect]
     Indication: NEOPLASM MALIGNANT
     Route: 048
     Dates: start: 20140411, end: 20140430

REACTIONS (1)
  - Parkinson^s disease [None]
